FAERS Safety Report 14543903 (Version 1)
Quarter: 2018Q1

REPORT INFORMATION
  Report Type: Spontaneous
  Country: US (occurrence: US)
  Receive Date: 20180216
  Receipt Date: 20180216
  Transmission Date: 20180509
  Serious: No
  Sender: FDA-Public Use
  Company Number: US-PFIZER INC-2018067175

PATIENT
  Age: 10 Year
  Sex: Male
  Weight: 26.31 kg

DRUGS (2)
  1. EUCRISA [Suspect]
     Active Substance: CRISABOROLE
     Indication: ECZEMA EYELIDS
     Dosage: UNK, 2X/DAY, APPLY A THIN LAYER TO THE AFFECTED AREA TWICE DAILY
     Dates: start: 20171212, end: 20171212
  2. QVAR [Concomitant]
     Active Substance: BECLOMETHASONE DIPROPIONATE
     Indication: ASTHMA
     Dosage: UNK UNK, DAILY

REACTIONS (2)
  - Application site burn [Recovered/Resolved]
  - Application site erythema [Recovered/Resolved]

NARRATIVE: CASE EVENT DATE: 20171212
